FAERS Safety Report 15330736 (Version 3)
Quarter: 2018Q4

REPORT INFORMATION
  Report Type: Spontaneous
  Country: FR (occurrence: FR)
  Receive Date: 20180829
  Receipt Date: 20181023
  Transmission Date: 20190204
  Serious: Yes (Other)
  Sender: FDA-Public Use
  Company Number: PHHY2018FR082594

PATIENT
  Age: 37 Year
  Sex: Male
  Weight: 90 kg

DRUGS (4)
  1. UVEDOSE [Concomitant]
     Active Substance: CHOLECALCIFEROL
     Indication: MULTIPLE SCLEROSIS
     Dosage: UNK
     Route: 065
     Dates: start: 2013
  2. ANDROTARDYL [Concomitant]
     Active Substance: TESTOSTERONE
     Indication: TRANS-SEXUALISM
     Dosage: UNK
     Route: 028
     Dates: start: 2008
  3. GILENYA [Suspect]
     Active Substance: FINGOLIMOD HYDROCHLORIDE
     Indication: MULTIPLE SCLEROSIS
     Dosage: 0.5 MG, QD
     Route: 048
     Dates: start: 20170419, end: 201801
  4. RITUXIMAB. [Suspect]
     Active Substance: RITUXIMAB
     Indication: MULTIPLE SCLEROSIS
     Dosage: 1 INJECTION EVERY 6 MONTHS
     Route: 042
     Dates: start: 201802

REACTIONS (6)
  - Asthmatic crisis [Unknown]
  - Asthma [Not Recovered/Not Resolved]
  - Blood pressure fluctuation [Recovered/Resolved]
  - Dyspnoea [Not Recovered/Not Resolved]
  - Depression [Recovered/Resolved]
  - Product use in unapproved indication [Unknown]

NARRATIVE: CASE EVENT DATE: 201803
